FAERS Safety Report 4351211-5 (Version None)
Quarter: 2004Q2

REPORT INFORMATION
  Report Type: 
  Country: None (occurrence: None)
  Receive Date: 20040430
  Receipt Date: 20040430
  Transmission Date: 20050107
  Serious: Yes (Hospitalization, Disabling)
  Sender: FDA-Public Use
  Company Number: None

PATIENT
  Age: 14 Year
  Sex: Female
  Weight: 52.1637 kg

DRUGS (4)
  1. TYLENOL [Suspect]
     Indication: NASOPHARYNGITIS
     Dosage: 2 TABS AT NIGHT
  2. TYLENOL [Suspect]
     Indication: SINUS CONGESTION
     Dosage: 2 TABS AT NIGHT
  3. BENADRYL D SOLUTION [Suspect]
     Indication: NASOPHARYNGITIS
     Dosage: 1 TAB AT NIGHT
  4. BENADRYL D SOLUTION [Suspect]
     Indication: SINUS CONGESTION
     Dosage: 1 TAB AT NIGHT

REACTIONS (3)
  - DEAFNESS BILATERAL [None]
  - MEDICATION ERROR [None]
  - SUDDEN HEARING LOSS [None]
